FAERS Safety Report 23907490 (Version 1)
Quarter: 2024Q2

REPORT INFORMATION
  Report Type: Other
  Country: IN (occurrence: IN)
  Receive Date: 20240528
  Receipt Date: 20240528
  Transmission Date: 20240715
  Serious: Yes (Other)
  Sender: FDA-Public Use
  Company Number: IN-002147023-NVSC2024IN109302

PATIENT
  Sex: Male

DRUGS (1)
  1. RANIBIZUMAB [Suspect]
     Active Substance: RANIBIZUMAB
     Indication: Age-related macular degeneration
     Dosage: UNK UNK, QMO
     Route: 050
     Dates: start: 20240210

REACTIONS (5)
  - Choroidal neovascularisation [Unknown]
  - Age-related macular degeneration [Unknown]
  - Parkinson^s disease [Unknown]
  - Hypertension [Unknown]
  - Spinal osteoarthritis [Unknown]
